FAERS Safety Report 8075694-2 (Version None)
Quarter: 2012Q1

REPORT INFORMATION
  Report Type: 
  Country: None (occurrence: None)
  Receive Date: 20120127
  Receipt Date: 20120123
  Transmission Date: 20120608
  Serious: Yes (Death)
  Sender: FDA-Public Use
  Company Number: US-ASTELLAS-2012US000830

PATIENT
  Sex: Male

DRUGS (1)
  1. PROGRAF [Suspect]
     Indication: TRANSPLANT
     Dosage: 2 MG, BID
     Route: 048
     Dates: start: 20110616

REACTIONS (2)
  - DEATH [None]
  - OFF LABEL USE [None]
